FAERS Safety Report 26197323 (Version 1)
Quarter: 2025Q4

REPORT INFORMATION
  Report Type: Report from Study
  Country: US (occurrence: US)
  Receive Date: 20251224
  Receipt Date: 20251224
  Transmission Date: 20260117
  Serious: Yes (Other)
  Sender: MALLINCKRODT
  Company Number: US-MALLINCKRODT-MNK202508205

PATIENT
  Age: 46 Year
  Sex: Male

DRUGS (1)
  1. CORTICOTROPIN [Suspect]
     Active Substance: CORTICOTROPIN
     Indication: Scleritis
     Dosage: 80 UNITS
     Route: 058
     Dates: start: 20251218

REACTIONS (3)
  - Scleritis [Unknown]
  - Condition aggravated [Unknown]
  - Headache [Unknown]

NARRATIVE: CASE EVENT DATE: 20251201
